FAERS Safety Report 10645638 (Version 4)
Quarter: 2015Q1

REPORT INFORMATION
  Report Type: Spontaneous
  Country: NL (occurrence: None)
  Receive Date: 20141209
  Receipt Date: 20150115
  Transmission Date: 20150720
  Serious: Yes (Hospitalization, Other)
  Sender: FDA-Public Use
  Company Number: 2014-NL-015828

PATIENT
  Age: 7 Year
  Sex: Male

DRUGS (2)
  1. XYREM [Suspect]
     Active Substance: SODIUM OXYBATE
     Indication: CATAPLEXY
     Route: 048
     Dates: start: 20141104, end: 20141125
  2. XYREM [Suspect]
     Active Substance: SODIUM OXYBATE
     Indication: NARCOLEPSY
     Route: 048
     Dates: start: 20141104, end: 20141125

REACTIONS (4)
  - Inappropriate schedule of drug administration [None]
  - Drug administration error [None]
  - Product use issue [None]
  - Fall [None]

NARRATIVE: CASE EVENT DATE: 201411
